FAERS Safety Report 4336668-8 (Version None)
Quarter: 2004Q2

REPORT INFORMATION
  Report Type: 
  Country: None (occurrence: None)
  Receive Date: 20040412
  Receipt Date: 20040408
  Transmission Date: 20050107
  Serious: Yes (Hospitalization)
  Sender: FDA-Public Use
  Company Number: US-GLAXOSMITHKLINE-A0506377A

PATIENT
  Sex: Female

DRUGS (6)
  1. ADVAIR DISKUS 100/50 [Suspect]
     Indication: WHEEZING
     Dosage: 1PUFF TWICE PER DAY
     Route: 055
     Dates: start: 20040101
  2. ZANTAC [Concomitant]
  3. VASOTEC [Concomitant]
  4. REGLAN [Concomitant]
  5. ALBUTEROL [Concomitant]
  6. PULMICORT [Concomitant]

REACTIONS (8)
  - BRONCHITIS [None]
  - DIZZINESS [None]
  - ENDOMETRIAL CANCER [None]
  - INSOMNIA [None]
  - MUSCLE CRAMP [None]
  - NERVOUSNESS [None]
  - PSYCHOMOTOR HYPERACTIVITY [None]
  - WHEEZING [None]
